FAERS Safety Report 20211327 (Version 1)
Quarter: 2021Q4

REPORT INFORMATION
  Report Type: Report from Study
  Country: US (occurrence: US)
  Receive Date: 20211221
  Receipt Date: 20211221
  Transmission Date: 20220303
  Serious: Yes (Other)
  Sender: FDA-Public Use
  Company Number: US-GLAXOSMITHKLINE-US2021AMR257680

PATIENT
  Age: 72 Year
  Sex: Male

DRUGS (3)
  1. MEPOLIZUMAB [Suspect]
     Active Substance: MEPOLIZUMAB
     Indication: Product used for unknown indication
     Dosage: UNK
  2. DUPIXENT [Suspect]
     Active Substance: DUPILUMAB
     Indication: Asthma
     Dosage: 600 MG EVERY OTHER WEEK
     Route: 058
     Dates: end: 20211001
  3. DUPIXENT [Suspect]
     Active Substance: DUPILUMAB
     Dosage: 300 MG EVERY OTHER WEEK
     Route: 058
     Dates: end: 20211001

REACTIONS (3)
  - Oesophageal carcinoma [Unknown]
  - Eosinophil count abnormal [Unknown]
  - Dyspnoea [Unknown]
